FAERS Safety Report 7103819-1 (Version None)
Quarter: 2010Q4

REPORT INFORMATION
  Report Type: 
  Country: None (occurrence: None)
  Receive Date: 20101115
  Receipt Date: 20101102
  Transmission Date: 20110411
  Serious: Yes (Other)
  Sender: FDA-Public Use
  Company Number: CA-ELI_LILLY_AND_COMPANY-CA201011000873

PATIENT
  Age: 39 Year
  Sex: Male

DRUGS (5)
  1. CYMBALTA [Suspect]
     Dosage: 60 MG, DAILY (1/D)
     Route: 048
  2. CLONAZEPAM [Concomitant]
  3. FLECAINIDE [Concomitant]
  4. WARFARIN [Concomitant]
  5. FINASTERIDE [Concomitant]

REACTIONS (5)
  - DRY THROAT [None]
  - GLOSSODYNIA [None]
  - THROAT IRRITATION [None]
  - TONGUE BLISTERING [None]
  - TONGUE EXFOLIATION [None]
